FAERS Safety Report 17584080 (Version 1)
Quarter: 2020Q1

REPORT INFORMATION
  Report Type: Spontaneous
  Country: FR (occurrence: FR)
  Receive Date: 20200326
  Receipt Date: 20200326
  Transmission Date: 20200409
  Serious: Yes (Hospitalization)
  Sender: FDA-Public Use
  Company Number: FR-TEVA-2020-FR-1211234

PATIENT
  Age: 25 Year
  Sex: Male

DRUGS (4)
  1. KETOPROFENE [Suspect]
     Active Substance: KETOPROFEN
     Indication: BACK PAIN
     Dosage: UNSPECIFIED
     Route: 065
     Dates: start: 20191008, end: 20191012
  2. ESOMEPRAZOLE. [Concomitant]
     Active Substance: ESOMEPRAZOLE MAGNESIUM
     Route: 048
     Dates: start: 20191008
  3. TRAMADOL (CHLORHYDRATE DE) [Suspect]
     Active Substance: TRAMADOL HYDROCHLORIDE
     Indication: BACK PAIN
     Dosage: UNSPECIFIED
     Route: 048
     Dates: start: 20191008, end: 20191012
  4. PARACETAMOL [Concomitant]
     Active Substance: ACETAMINOPHEN
     Indication: BACK PAIN
     Route: 048
     Dates: start: 20191008

REACTIONS (5)
  - Erythema [Recovered/Resolved]
  - Face oedema [Recovered/Resolved]
  - Drug hypersensitivity [Recovered/Resolved]
  - Pruritus allergic [Recovered/Resolved]
  - Dyspnoea [Recovered/Resolved]

NARRATIVE: CASE EVENT DATE: 20191012
